FAERS Safety Report 23280604 (Version 1)
Quarter: 2023Q4

REPORT INFORMATION
  Report Type: Other
  Country: DE (occurrence: None)
  Receive Date: 20231211
  Receipt Date: 20231211
  Transmission Date: 20240109
  Serious: Yes (Hospitalization)
  Sender: FDA-Public Use
  Company Number: DE-ROCHE-3386224

PATIENT
  Age: 35 Year
  Sex: Female

DRUGS (14)
  1. OCRELIZUMAB [Suspect]
     Active Substance: OCRELIZUMAB
     Indication: Relapsing multiple sclerosis
     Route: 042
     Dates: start: 20220617
  2. OCRELIZUMAB [Suspect]
     Active Substance: OCRELIZUMAB
     Route: 042
     Dates: start: 20230119
  3. DEKRISTOLVIT D3 [Concomitant]
     Indication: Prophylaxis
     Dosage: DOSE: 5600?DOSE FREQUENCY: BIS (TWICE A WEEK)
     Route: 048
     Dates: start: 202206
  4. FERRO-SANOL DUODENAL [Concomitant]
     Active Substance: FERROUS GLYCINE SULFATE
     Dosage: DOSE: 100?DOSE FREQUENCY: OTHER
     Route: 048
     Dates: start: 202304
  5. PRAMIPEXOLE [Concomitant]
     Active Substance: PRAMIPEXOLE
     Indication: Restless legs syndrome
     Dosage: DOSE: 0.18?DOSE FREQUENCY: QD (EVERY DAY)
     Route: 048
     Dates: start: 20230424
  6. PREDNISOLONE [Concomitant]
     Active Substance: PREDNISOLONE
     Dosage: DOSE: 25 DECREASING?DOSE FREQUENCY: QD (EVERY DAY)
     Route: 048
     Dates: start: 202306
  7. CEFTRIAXONE [Concomitant]
     Active Substance: CEFTRIAXONE\CEFTRIAXONE SODIUM
     Indication: Urinary tract infection
     Dosage: DOSE: UN?DOSE FREQUENCY: QD (EVERY DAY)
     Route: 065
     Dates: start: 20230630, end: 20230704
  8. CRESOL\UREA [Concomitant]
     Active Substance: CRESOL\UREA
     Dosage: DOSE: UN?DOSE FREQUENCY: PRN (AS NEEDED)
     Route: 061
     Dates: start: 202306, end: 202307
  9. PREDNISOLONE [Concomitant]
     Active Substance: PREDNISOLONE
     Dosage: DOSE FREQUENCY: ONCE
     Route: 042
     Dates: start: 20220617, end: 20220617
  10. PREDNISOLONE [Concomitant]
     Active Substance: PREDNISOLONE
     Dosage: DOSE FREQUENCY: ONCE
     Route: 042
     Dates: start: 20220701, end: 20220701
  11. PREDNISOLONE [Concomitant]
     Active Substance: PREDNISOLONE
     Dosage: DOSE FREQUENCY: ONCE
     Route: 042
     Dates: start: 20230119, end: 20230119
  12. EBASTINE [Concomitant]
     Active Substance: EBASTINE
     Dosage: DOSE FREQUENCY: 2 TIMES A DAY FOR 3 DAYS, START 1 DAY BEFORE INFUSION.
     Route: 048
     Dates: start: 20220616, end: 20220618
  13. EBASTINE [Concomitant]
     Active Substance: EBASTINE
     Dosage: DOSE FREQUENCY: 2 TIMES A DAY FOR 3 DAYS, START 1 DAY BEFORE INFUSION
     Route: 048
     Dates: start: 20220630, end: 20220702
  14. EBASTINE [Concomitant]
     Active Substance: EBASTINE
     Dosage: DOSE FREQUENCY: 2 TIMES  DAY FOR 3 DAYS, START 1 DAY BEFORE INFUSION
     Route: 048
     Dates: start: 20230118, end: 20230120

REACTIONS (3)
  - Schizophreniform disorder [Not Recovered/Not Resolved]
  - Proteinuria [Recovered/Resolved]
  - Urinary tract infection [Recovered/Resolved]

NARRATIVE: CASE EVENT DATE: 20230401
